FAERS Safety Report 6484041-9 (Version None)
Quarter: 2009Q4

REPORT INFORMATION
  Report Type: 
  Country: None (occurrence: None)
  Receive Date: 20091209
  Receipt Date: 20090518
  Transmission Date: 20100525
  Serious: No
  Sender: FDA-Public Use
  Company Number: US-AMGEN-KDL347656

PATIENT
  Sex: Female

DRUGS (1)
  1. ENBREL [Suspect]
     Indication: PSORIASIS
     Route: 058

REACTIONS (5)
  - COUGH [None]
  - DYSPNOEA [None]
  - RESPIRATORY TRACT CONGESTION [None]
  - TOOTH INFECTION [None]
  - WHEEZING [None]
